FAERS Safety Report 25438018 (Version 3)
Quarter: 2025Q3

REPORT INFORMATION
  Report Type: Spontaneous
  Country: US (occurrence: US)
  Receive Date: 20250616
  Receipt Date: 20250703
  Transmission Date: 20251021
  Serious: Yes (Hospitalization)
  Sender: ROCHE
  Company Number: US-ROCHE-10000310026

PATIENT
  Age: 41 Year
  Sex: Male
  Weight: 68.9 kg

DRUGS (11)
  1. HEMLIBRA [Suspect]
     Active Substance: EMICIZUMAB-KXWH
     Indication: Factor VIII deficiency
     Dosage: STRENGTH: 105MG/0.7ML
     Route: 058
     Dates: start: 201304
  2. HEMLIBRA [Suspect]
     Active Substance: EMICIZUMAB-KXWH
     Route: 058
     Dates: start: 20190225
  3. ADVATE [OCTOCOG ALFA] [Concomitant]
  4. TYLENOL [Concomitant]
     Active Substance: ACETAMINOPHEN
  5. DEXTRIN\WHEAT [Concomitant]
     Active Substance: ICODEXTRIN\WHEAT
  6. FERROUS SULFATE [Concomitant]
     Active Substance: FERROUS SULFATE
  7. METHOCARBAMOL [Concomitant]
     Active Substance: METHOCARBAMOL
  8. DILANTIN [Concomitant]
     Active Substance: PHENYTOIN
  9. NORVASC [Concomitant]
     Active Substance: AMLODIPINE BESYLATE
  10. NEURONTIN [Concomitant]
     Active Substance: GABAPENTIN
  11. METAMUCIL THERAPY FOR REGULARITY [Concomitant]
     Active Substance: PSYLLIUM HUSK

REACTIONS (11)
  - Blood test abnormal [Recovered/Resolved]
  - Haemorrhoids [Recovered/Resolved]
  - Hypercholesterolaemia [Unknown]
  - Nausea [Recovered/Resolved]
  - Blood loss anaemia [Recovered/Resolved]
  - Vomiting [Recovered/Resolved]
  - Thrombocytosis [Recovered/Resolved]
  - Syncope [Recovered/Resolved]
  - Leukocytosis [Recovered/Resolved]
  - Hypotension [Recovered/Resolved]
  - Haemorrhage [Recovered/Resolved]
